FAERS Safety Report 18378697 (Version 1)
Quarter: 2020Q4

REPORT INFORMATION
  Report Type: Spontaneous
  Country: BR (occurrence: BR)
  Receive Date: 20201014
  Receipt Date: 20201014
  Transmission Date: 20210114
  Serious: Yes (Other)
  Sender: FDA-Public Use
  Company Number: BR-SUN PHARMACEUTICAL INDUSTRIES LTD-2020R1-263364

PATIENT
  Age: 66 Year
  Sex: Male

DRUGS (2)
  1. HYDROXYCHLOROQUINE [Suspect]
     Active Substance: HYDROXYCHLOROQUINE
     Indication: COVID-19
     Dosage: UNK
     Route: 065
  2. AZITHROMYCIN ANHYDROUS. [Concomitant]
     Active Substance: AZITHROMYCIN ANHYDROUS
     Indication: COVID-19
     Dosage: UNK
     Route: 065

REACTIONS (1)
  - Supraventricular extrasystoles [Recovering/Resolving]
